FAERS Safety Report 13756334 (Version 8)
Quarter: 2018Q2

REPORT INFORMATION
  Report Type: Spontaneous
  Country: US (occurrence: US)
  Receive Date: 20170714
  Receipt Date: 20180501
  Transmission Date: 20180711
  Serious: Yes (Other)
  Sender: FDA-Public Use
  Company Number: US-PFIZER INC-2017170721

PATIENT
  Age: 61 Year
  Sex: Male

DRUGS (1)
  1. LIPITOR [Suspect]
     Active Substance: ATORVASTATIN CALCIUM
     Indication: HYPERCHOLESTEROLAEMIA
     Dosage: 40 MG, DAILY
     Route: 048
     Dates: start: 20150114, end: 201509

REACTIONS (4)
  - Hepatic failure [Unknown]
  - Myopathy toxic [Unknown]
  - Myositis [Unknown]
  - Myopathy [Unknown]

NARRATIVE: CASE EVENT DATE: 20150918
